FAERS Safety Report 7884057-1 (Version None)
Quarter: 2011Q4

REPORT INFORMATION
  Report Type: 
  Country: None (occurrence: None)
  Receive Date: 20111102
  Receipt Date: 20111027
  Transmission Date: 20120403
  Serious: Yes (Hospitalization)
  Sender: FDA-Public Use
  Company Number: PHEH2011US07970

PATIENT
  Sex: Male

DRUGS (1)
  1. TOBI [Suspect]
     Indication: LUNG INFECTION PSEUDOMONAL
     Dosage: 300 MG, BID
     Dates: start: 20110601

REACTIONS (1)
  - CHRONIC OBSTRUCTIVE PULMONARY DISEASE [None]
